FAERS Safety Report 10885753 (Version 2)
Quarter: 2015Q4

REPORT INFORMATION
  Report Type: Spontaneous
  Country: JP (occurrence: JP)
  Receive Date: 20150304
  Receipt Date: 20151116
  Transmission Date: 20160304
  Serious: Yes (Death, Hospitalization, Other)
  Sender: FDA-Public Use
  Company Number: GXJP2015JP000579

PATIENT
  Age: 70 Year
  Sex: Male

DRUGS (10)
  1. BEVACIZUMAB [Suspect]
     Active Substance: BEVACIZUMAB
     Indication: PERIPHERAL NERVE SHEATH TUMOUR MALIGNANT
  2. PYRAZINAMIDE. [Suspect]
     Active Substance: PYRAZINAMIDE
     Indication: PULMONARY TUBERCULOSIS
     Route: 048
  3. RIFAMPICIN [Suspect]
     Active Substance: RIFAMPIN
     Indication: PULMONARY TUBERCULOSIS
     Route: 048
  4. TEMOZOLOMIDE. [Suspect]
     Active Substance: TEMOZOLOMIDE
     Indication: PERIPHERAL NERVE SHEATH TUMOUR MALIGNANT
  5. BETAMETHASONE. [Suspect]
     Active Substance: BETAMETHASONE
     Indication: GLIOBLASTOMA
     Route: 065
  6. ETHAMBUTOL [Suspect]
     Active Substance: ETHAMBUTOL HYDROCHLORIDE
     Indication: PULMONARY TUBERCULOSIS
     Route: 048
  7. TEMOZOLOMIDE. [Suspect]
     Active Substance: TEMOZOLOMIDE
     Indication: GLIOBLASTOMA
     Dosage: 75 MG/M2, QD
     Route: 065
  8. ISONIAZID. [Suspect]
     Active Substance: ISONIAZID
     Indication: PULMONARY TUBERCULOSIS
     Route: 065
  9. BETAMETHASONE. [Suspect]
     Active Substance: BETAMETHASONE
     Indication: PERIPHERAL NERVE SHEATH TUMOUR MALIGNANT
  10. BEVACIZUMAB [Suspect]
     Active Substance: BEVACIZUMAB
     Indication: GLIOBLASTOMA
     Dosage: 10 MG/KG, QW2
     Route: 065

REACTIONS (12)
  - Respiratory disorder [Unknown]
  - Respiratory failure [Fatal]
  - Bone marrow failure [Unknown]
  - Altered state of consciousness [Unknown]
  - Pulmonary tuberculosis [Unknown]
  - Drug eruption [Unknown]
  - Lymphopenia [Unknown]
  - Pyrexia [Unknown]
  - Stevens-Johnson syndrome [Unknown]
  - Sepsis [Fatal]
  - Lung infection [Unknown]
  - Thrombocytopenia [Unknown]
